FAERS Safety Report 9086095 (Version 1)
Quarter: 2013Q1

REPORT INFORMATION
  Report Type: Spontaneous
  Country: US (occurrence: US)
  Receive Date: 20130201
  Receipt Date: 20130201
  Transmission Date: 20140127
  Serious: No
  Sender: FDA-Public Use
  Company Number: US-PFIZER INC-2013040679

PATIENT
  Age: 74 Year
  Sex: Female
  Weight: 74.83 kg

DRUGS (2)
  1. LIPITOR [Suspect]
     Indication: BLOOD CHOLESTEROL ABNORMAL
     Dosage: 10 MG, DAILY
  2. PILOCARPINE HYDROCHLORIDE [Concomitant]
     Indication: DRY MOUTH
     Dosage: 5 MG, UNK

REACTIONS (3)
  - Nasopharyngitis [Recovering/Resolving]
  - Influenza [Recovering/Resolving]
  - Nasal congestion [Recovering/Resolving]
